FAERS Safety Report 23364896 (Version 4)
Quarter: 2024Q1

REPORT INFORMATION
  Report Type: Spontaneous
  Country: CA (occurrence: CA)
  Receive Date: 20240104
  Receipt Date: 20240327
  Transmission Date: 20240409
  Serious: Yes (Hospitalization, Other)
  Sender: FDA-Public Use
  Company Number: CA-CELLTRION INC.-2023CA025276

PATIENT

DRUGS (4)
  1. INFLECTRA [Suspect]
     Active Substance: INFLIXIMAB-DYYB
     Indication: Crohn^s disease
     Dosage: 5 MG/KG. 0, 2, 6 WEEKS THEN EVERY 8 WEEKS
     Route: 042
     Dates: start: 20231213
  2. INFLECTRA [Suspect]
     Active Substance: INFLIXIMAB-DYYB
     Dosage: 255 MG (5MG/KG), WEEK 2 INDUCTION
     Route: 042
     Dates: start: 20231227
  3. INFLECTRA [Suspect]
     Active Substance: INFLIXIMAB-DYYB
     Dosage: 270 MG (5 MG/KG) AFTER 3 WEEKS AND 6 DAYS, (WEEK 6 INDUCTION)
     Route: 042
     Dates: start: 20240123
  4. INFLECTRA [Suspect]
     Active Substance: INFLIXIMAB-DYYB
     Dosage: 280 MG (5 MG/KG), EVERY 8 WEEKS
     Route: 042
     Dates: start: 20240319

REACTIONS (6)
  - Therapeutic response shortened [Recovered/Resolved]
  - Condition aggravated [Not Recovered/Not Resolved]
  - Anal fissure [Not Recovered/Not Resolved]
  - Anal infection [Recovered/Resolved]
  - Alopecia [Not Recovered/Not Resolved]
  - Constipation [Not Recovered/Not Resolved]

NARRATIVE: CASE EVENT DATE: 20231227
